FAERS Safety Report 18596815 (Version 2)
Quarter: 2020Q4

REPORT INFORMATION
  Report Type: Report from Study
  Country: NL (occurrence: NL)
  Receive Date: 20201209
  Receipt Date: 20201218
  Transmission Date: 20210114
  Serious: Yes (Hospitalization)
  Sender: FDA-Public Use
  Company Number: NL-BRISTOL-MYERS SQUIBB COMPANY-BMS-2020-104126

PATIENT
  Age: 65 Year
  Sex: Male
  Weight: 73 kg

DRUGS (2)
  1. IPILIMUMAB [Suspect]
     Active Substance: IPILIMUMAB
     Indication: BLADDER CANCER
     Dosage: 70 MILLIGRAM, Q3WK
     Route: 042
     Dates: start: 20200715
  2. NIVOLUMAB [Suspect]
     Active Substance: NIVOLUMAB
     Indication: BLADDER CANCER
     Dosage: 210 MILLIGRAM, Q3WK
     Route: 042
     Dates: start: 20200715

REACTIONS (1)
  - Cognitive disorder [Recovering/Resolving]

NARRATIVE: CASE EVENT DATE: 20201204
